FAERS Safety Report 5512256-2 (Version None)
Quarter: 2007Q4

REPORT INFORMATION
  Report Type: 
  Country: None (occurrence: None)
  Receive Date: 20071112
  Receipt Date: 20070817
  Transmission Date: 20080405
  Serious: No
  Sender: FDA-Public Use
  Company Number: A0671266A

PATIENT
  Sex: Female

DRUGS (3)
  1. VERAMYST [Suspect]
     Dosage: 2SPR PER DAY
     Route: 045
     Dates: start: 20070101
  2. MULTIPLE MEDICATIONS [Concomitant]
  3. CORTICOSTEROIDS [Concomitant]

REACTIONS (1)
  - CANDIDIASIS [None]
